FAERS Safety Report 19853495 (Version 1)
Quarter: 2021Q3

REPORT INFORMATION
  Report Type: Report from Study
  Country: CO (occurrence: CO)
  Receive Date: 20210919
  Receipt Date: 20210919
  Transmission Date: 20211014
  Serious: Yes (Death)
  Sender: FDA-Public Use
  Company Number: NVSC2020CO260161

PATIENT
  Sex: Male

DRUGS (3)
  1. MEKINIST [Suspect]
     Active Substance: TRAMETINIB DIMETHYL SULFOXIDE
     Indication: METASTATIC MALIGNANT MELANOMA
     Dosage: 2 MG, QD
     Route: 048
  2. TAFINLAR [Suspect]
     Active Substance: DABRAFENIB MESYLATE
     Dosage: UNK UNK, QD
     Route: 048
  3. TAFINLAR [Suspect]
     Active Substance: DABRAFENIB MESYLATE
     Indication: METASTATIC MALIGNANT MELANOMA
     Dosage: 150 MG, BID (EVERY 12 HRS)
     Route: 048

REACTIONS (15)
  - Vomiting [Unknown]
  - Urticaria [Unknown]
  - Headache [Unknown]
  - Chills [Unknown]
  - Malaise [Unknown]
  - Inappropriate schedule of product administration [Unknown]
  - Furuncle [Unknown]
  - Inguinal hernia [Unknown]
  - Arthropod bite [Unknown]
  - Illness [Unknown]
  - Weight decreased [Unknown]
  - Asthenia [Unknown]
  - General physical health deterioration [Unknown]
  - Pyrexia [Unknown]
  - Death [Fatal]
